FAERS Safety Report 7705357-1 (Version None)
Quarter: 2011Q3

REPORT INFORMATION
  Report Type: 
  Country: None (occurrence: None)
  Receive Date: 20110823
  Receipt Date: 20110823
  Transmission Date: 20111222
  Serious: Yes (Hospitalization)
  Sender: FDA-Public Use
  Company Number: None

PATIENT
  Sex: Female
  Weight: 62.3 kg

DRUGS (1)
  1. INCIVEK [Suspect]
     Indication: HEPATITIS C
     Dosage: 375 Q8H PO
     Route: 048
     Dates: start: 20110714, end: 20110719

REACTIONS (5)
  - VASCULITIS [None]
  - ANHIDROSIS [None]
  - RASH [None]
  - OEDEMA [None]
  - WEIGHT INCREASED [None]
